FAERS Safety Report 16853220 (Version 2)
Quarter: 2020Q1

REPORT INFORMATION
  Report Type: Spontaneous
  Country: CO (occurrence: CO)
  Receive Date: 20190925
  Receipt Date: 20200228
  Transmission Date: 20200409
  Serious: Yes (Other)
  Sender: FDA-Public Use
  Company Number: CO-009507513-1909COL011060

PATIENT
  Sex: Female

DRUGS (1)
  1. APREPITANT. [Suspect]
     Active Substance: APREPITANT
     Dosage: 150 MILLIGRAM, UNKNOWN
     Route: 042

REACTIONS (1)
  - Dyspnoea [Recovered/Resolved]
